FAERS Safety Report 8574030-2 (Version None)
Quarter: 2012Q3

REPORT INFORMATION
  Report Type: 
  Country: None (occurrence: None)
  Receive Date: 20120806
  Receipt Date: 20120724
  Transmission Date: 20120928
  Serious: No
  Sender: FDA-Public Use
  Company Number: CA-ELI_LILLY_AND_COMPANY-CA201207007980

PATIENT
  Age: 65 Year
  Sex: Male

DRUGS (3)
  1. CYMBALTA [Suspect]
     Indication: DEPRESSION
     Dosage: 30 MG, UNK
     Dates: start: 20111101
  2. TESTOSTERONE [Concomitant]
     Dosage: UNK
     Dates: start: 20120301
  3. FLOMAX [Concomitant]

REACTIONS (3)
  - AGITATION [None]
  - ANGER [None]
  - LIVER DISORDER [None]
